FAERS Safety Report 12104977 (Version 2)
Quarter: 2016Q1

REPORT INFORMATION
  Report Type: Spontaneous
  Country: FR (occurrence: FR)
  Receive Date: 20160223
  Receipt Date: 20160310
  Transmission Date: 20160526
  Serious: Yes (Hospitalization)
  Sender: FDA-Public Use
  Company Number: FR-BAXTER-2016BAX007470

PATIENT
  Age: 44 Year
  Sex: Male

DRUGS (19)
  1. DEXAMETHASONE. [Suspect]
     Active Substance: DEXAMETHASONE
     Indication: HODGKIN^S DISEASE
     Dosage: 4 COURSES OF DHAP, ON D1 AT 4 PO
     Route: 048
     Dates: start: 201206, end: 201209
  2. CISPLATINE [Suspect]
     Active Substance: CISPLATIN
     Indication: HODGKIN^S DISEASE
     Dosage: 4 COURSES OF DHAP, ON D1
     Route: 042
     Dates: start: 201206, end: 201209
  3. DAUNORUBICINE [Concomitant]
     Active Substance: DAUNORUBICIN
     Dosage: FAMYLY PROTOCOL, FROM D3 TO D5
     Route: 065
  4. ETOPOSIDE. [Suspect]
     Active Substance: ETOPOSIDE
     Dosage: BEAM TYPE, ON D2, D3, D4 AND D5 (WHICH RESULTED IN 380 MG ON 27FEB2013, 28FEB2013, 01MAR2013 AND 02M
     Route: 042
     Dates: start: 20130227, end: 20130302
  5. DOXORUBICIN HYDROCHLORIDE. [Suspect]
     Active Substance: DOXORUBICIN HYDROCHLORIDE
     Indication: HODGKIN^S DISEASE
     Dosage: PART OF 8 COURSES OF ABVD, ON D1 AND D8
     Route: 042
     Dates: start: 200510, end: 200605
  6. VELBE [Suspect]
     Active Substance: VINBLASTINE SULFATE
     Indication: HODGKIN^S DISEASE
     Dosage: PART OF 8 COURSES OF ABVD, ON D1 AND D8
     Route: 042
     Dates: start: 200510, end: 200605
  7. BLEOMYCINE BELLON [Suspect]
     Active Substance: BLEOMYCIN SULFATE
     Indication: HODGKIN^S DISEASE
     Dosage: PART OF 8 COURSES OF ABVD, ON D1 AND D8
     Route: 042
     Dates: start: 200510, end: 200605
  8. DETICENE [Suspect]
     Active Substance: DACARBAZINE
     Indication: HODGKIN^S DISEASE
     Dosage: PART OF 8 COURSES OF ABVD, ON D1 AND D8
     Route: 042
     Dates: start: 200510, end: 200605
  9. ARACYTINE [Suspect]
     Active Substance: CYTARABINE
     Indication: HODGKIN^S DISEASE
     Dosage: 4 COURSES OF DHAP, ON D1 AND D2
     Route: 042
     Dates: start: 201206, end: 201209
  10. CISPLATINE [Suspect]
     Active Substance: CISPLATIN
     Dosage: 4 COURSES OF ICE, D1 TO D3
     Route: 042
     Dates: start: 201210, end: 201301
  11. ETOPOSIDE. [Suspect]
     Active Substance: ETOPOSIDE
     Indication: HODGKIN^S DISEASE
     Dosage: 4 COURSES OF ICE, D1 TO D3
     Route: 042
     Dates: start: 201210, end: 201301
  12. DAUNORUBICINE [Concomitant]
     Active Substance: DAUNORUBICIN
     Indication: BONE MARROW CONDITIONING REGIMEN
     Dosage: FAMYLY PROTOCOL, FROM D3 TO D5
     Route: 065
  13. ARACYTINE [Suspect]
     Active Substance: CYTARABINE
     Dosage: BEAM TYPE, ON D2, D3, D4 AND D5 (RESULTING IN 760 MG ON 27FEB2013, 28FEB2013, 01MAR2013 AND 02MAR201
     Route: 042
     Dates: start: 20130227, end: 20130302
  14. BICNU [Suspect]
     Active Substance: CARMUSTINE
     Indication: BONE MARROW CONDITIONING REGIMEN
     Dosage: BEAM TYPE, ON D1
     Route: 042
     Dates: start: 20130226, end: 20130226
  15. ALKERAN [Suspect]
     Active Substance: MELPHALAN
     Indication: BONE MARROW CONDITIONING REGIMEN
     Dosage: BEAM TYPE, ON D6, RESULTED IN 265 MG
     Route: 048
     Dates: start: 20130303, end: 20130303
  16. HOLOXAN 2000 MG, POUDRE POUR USAGE PARENT?RAL [Suspect]
     Active Substance: IFOSFAMIDE
     Indication: HODGKIN^S DISEASE
     Dosage: 4 COURSES OF ICE, ON D1
     Route: 042
     Dates: start: 201210, end: 201301
  17. PREVISCAN [Concomitant]
     Active Substance: FLUINDIONE
     Indication: PRODUCT USED FOR UNKNOWN INDICATION
     Route: 065
  18. CYTARABINE. [Concomitant]
     Active Substance: CYTARABINE
     Indication: BONE MARROW CONDITIONING REGIMEN
     Dosage: FAMYLY PROTOCOL, FROM D3 TO D9
     Route: 065
  19. CYTARABINE. [Concomitant]
     Active Substance: CYTARABINE
     Dosage: FAMYLY PROTOCOL, FROM D3 TO D5
     Route: 065

REACTIONS (1)
  - Acute monocytic leukaemia [Not Recovered/Not Resolved]

NARRATIVE: CASE EVENT DATE: 201512
